FAERS Safety Report 9331893 (Version 2)
Quarter: 2013Q3

REPORT INFORMATION
  Report Type: Spontaneous
  Country: US (occurrence: US)
  Receive Date: 20130605
  Receipt Date: 20130709
  Transmission Date: 20140515
  Serious: No
  Sender: FDA-Public Use
  Company Number: US-009507513-1305USA017245

PATIENT
  Sex: Female
  Weight: 56.69 kg

DRUGS (5)
  1. CLARITIN [Suspect]
     Indication: SEASONAL ALLERGY
     Dosage: 10 MG, QD
     Route: 048
     Dates: start: 201304, end: 201305
  2. CLARITIN [Suspect]
     Indication: HYPERSENSITIVITY
  3. CLARITIN [Suspect]
     Indication: MEDICAL OBSERVATION
  4. ALBUTEROL [Concomitant]
     Indication: ASTHMA
     Dosage: UNK, UNKNOWN
  5. EPIPEN [Concomitant]
     Indication: FOOD ALLERGY
     Dosage: UNK, UNKNOWN

REACTIONS (1)
  - Drug ineffective [Unknown]
